FAERS Safety Report 7368721-9 (Version None)
Quarter: 2011Q1

REPORT INFORMATION
  Report Type: 
  Country: None (occurrence: None)
  Receive Date: 20110304
  Receipt Date: 20110224
  Transmission Date: 20110831
  Serious: Yes (Hospitalization, Disabling, Other)
  Sender: FDA-Public Use
  Company Number: 2009SP028658

PATIENT
  Age: 22 Year
  Sex: Female
  Weight: 65.7716 kg

DRUGS (3)
  1. NUVARING [Suspect]
     Indication: CONTRACEPTION
     Dates: start: 20021201, end: 20071101
  2. MULTI-VITAMIN [Concomitant]
  3. ACETAMINOPHEN [Concomitant]

REACTIONS (51)
  - CEREBRAL ARTERY OCCLUSION [None]
  - URINARY RETENTION [None]
  - HEMIPLEGIA [None]
  - ADJUSTMENT DISORDER [None]
  - TRAUMATIC BRAIN INJURY [None]
  - BALANCE DISORDER [None]
  - CEREBRAL INFARCTION [None]
  - RESPIRATORY FAILURE [None]
  - CEREBRAL VENTRICLE DILATATION [None]
  - NIGHTMARE [None]
  - HYPOPHAGIA [None]
  - EPILEPSY [None]
  - HEADACHE [None]
  - MENTAL DISORDER [None]
  - VICTIM OF SEXUAL ABUSE [None]
  - BRAIN OEDEMA [None]
  - HYPERTENSION [None]
  - TRANSAMINASES INCREASED [None]
  - MIGRAINE [None]
  - INCORRECT DRUG ADMINISTRATION DURATION [None]
  - IMPAIRED WORK ABILITY [None]
  - RHABDOMYOLYSIS [None]
  - CEREBRAL HAEMORRHAGE [None]
  - INSOMNIA [None]
  - COGNITIVE DISORDER [None]
  - FATIGUE [None]
  - PROCEDURAL PAIN [None]
  - COMA [None]
  - PNEUMONIA [None]
  - APHASIA [None]
  - POST-TRAUMATIC STRESS DISORDER [None]
  - SUICIDAL IDEATION [None]
  - INJURY [None]
  - MOUTH HAEMORRHAGE [None]
  - CAROTID ARTERY OCCLUSION [None]
  - BRAIN HERNIATION [None]
  - CEREBRAL ARTERY THROMBOSIS [None]
  - DRUG EFFECT DECREASED [None]
  - VISUAL IMPAIRMENT [None]
  - DYSPHAGIA [None]
  - ISCHAEMIC STROKE [None]
  - PAROXYSMAL NOCTURNAL HAEMOGLOBINURIA [None]
  - PYREXIA [None]
  - INTRACRANIAL PRESSURE INCREASED [None]
  - CAROTID ARTERY DISSECTION [None]
  - BRAIN MIDLINE SHIFT [None]
  - URINARY TRACT INFECTION [None]
  - SUBDURAL HYGROMA [None]
  - FALL [None]
  - EMOTIONAL DISORDER [None]
  - REBOUND EFFECT [None]
